FAERS Safety Report 17049719 (Version 2)
Quarter: 2022Q4

REPORT INFORMATION
  Report Type: Report from Study
  Country: DE (occurrence: DE)
  Receive Date: 20191119
  Receipt Date: 20221010
  Transmission Date: 20230112
  Serious: Yes (Other)
  Sender: FDA-Public Use
  Company Number: DE-AMGEN-DEUNI2019190567

PATIENT
  Age: 79 Year
  Sex: Female
  Weight: 77 kg

DRUGS (28)
  1. PANITUMUMAB [Suspect]
     Active Substance: PANITUMUMAB
     Indication: Colorectal cancer metastatic
     Dosage: 455 MILLIGRAM
     Route: 042
     Dates: start: 20180423
  2. PANITUMUMAB [Suspect]
     Active Substance: PANITUMUMAB
     Dosage: 440 MILLIGRAM
     Route: 042
     Dates: start: 20180611
  3. PANITUMUMAB [Suspect]
     Active Substance: PANITUMUMAB
     Dosage: 435 MILLIGRAM
     Route: 042
     Dates: start: 20180625
  4. PANITUMUMAB [Suspect]
     Active Substance: PANITUMUMAB
     Dosage: 420 MILLIGRAM
     Route: 042
     Dates: start: 20180802
  5. PANITUMUMAB [Suspect]
     Active Substance: PANITUMUMAB
     Dosage: 465 MILLIGRAM
     Route: 042
     Dates: start: 20190211
  6. IRINOTECAN [Suspect]
     Active Substance: IRINOTECAN
     Indication: Colorectal cancer metastatic
     Dosage: 335 MILLIGRAM
     Route: 065
     Dates: start: 20180423
  7. IRINOTECAN [Suspect]
     Active Substance: IRINOTECAN
     Dosage: 325 MILLIGRAM
     Route: 065
     Dates: start: 20180611
  8. IRINOTECAN [Suspect]
     Active Substance: IRINOTECAN
     Dosage: 320 MILLIGRAM
     Route: 065
     Dates: start: 20180802
  9. IRINOTECAN [Suspect]
     Active Substance: IRINOTECAN
     Dosage: 330 MILLIGRAM
     Route: 065
     Dates: start: 20190211
  10. LEUCOVORIN [Suspect]
     Active Substance: LEUCOVORIN
     Indication: Colorectal cancer metastatic
     Dosage: 740 MILLIGRAM
     Route: 065
     Dates: start: 20180423
  11. LEUCOVORIN [Suspect]
     Active Substance: LEUCOVORIN
     Dosage: 730 MILLIGRAM
     Route: 065
     Dates: start: 20180611
  12. LEUCOVORIN [Suspect]
     Active Substance: LEUCOVORIN
     Dosage: 720 MILLIGRAM
     Route: 065
     Dates: start: 20180802
  13. LEUCOVORIN [Suspect]
     Active Substance: LEUCOVORIN
     Dosage: 750 MILLIGRAM
     Route: 065
     Dates: start: 20190211
  14. FLUOROURACIL [Suspect]
     Active Substance: FLUOROURACIL
     Indication: Colorectal cancer metastatic
     Dosage: 740 MILLIGRAM
     Route: 040
     Dates: start: 20180423
  15. FLUOROURACIL [Suspect]
     Active Substance: FLUOROURACIL
     Dosage: 4440 MILLIGRAM
     Route: 042
     Dates: start: 20180423
  16. FLUOROURACIL [Suspect]
     Active Substance: FLUOROURACIL
     Dosage: 4390 MILLIGRAM
     Route: 042
     Dates: start: 20180611
  17. FLUOROURACIL [Suspect]
     Active Substance: FLUOROURACIL
     Dosage: 550 MILLIGRAM
     Route: 040
     Dates: start: 20180611
  18. FLUOROURACIL [Suspect]
     Active Substance: FLUOROURACIL
     Dosage: 4365 MILLIGRAM
     Route: 042
     Dates: start: 20180625
  19. FLUOROURACIL [Suspect]
     Active Substance: FLUOROURACIL
     Dosage: 540 MILLIGRAM
     Route: 040
     Dates: start: 20180802
  20. FLUOROURACIL [Suspect]
     Active Substance: FLUOROURACIL
     Dosage: 4315 MILLIGRAM
     Route: 042
     Dates: start: 20180802
  21. FLUOROURACIL [Suspect]
     Active Substance: FLUOROURACIL
     Dosage: 560 MILLIGRAM
     Route: 040
     Dates: start: 20190211
  22. FLUOROURACIL [Suspect]
     Active Substance: FLUOROURACIL
     Dosage: 3365 MILLIGRAM
     Route: 042
     Dates: start: 20190211
  23. BISOPROLOL [Concomitant]
     Active Substance: BISOPROLOL
     Indication: Hypertension
     Dosage: 2.5 MILLIGRAM, BID
     Route: 048
  24. AMLODIPINE [Concomitant]
     Active Substance: AMLODIPINE BESYLATE
     Indication: Hypertension
     Dosage: 5 MILLIGRAM, QD
     Route: 048
  25. CANDESARTAN [Concomitant]
     Active Substance: CANDESARTAN
     Indication: Hypertension
     Dosage: 4 MILLIGRAM, QD
     Route: 048
  26. CHOLECALCIFEROL [Concomitant]
     Active Substance: CHOLECALCIFEROL
     Indication: Vitamin D deficiency
     Dosage: 2000 IE QWK
     Route: 048
     Dates: start: 20171030
  27. BENSERAZIDE\LEVODOPA [Concomitant]
     Active Substance: BENSERAZIDE\LEVODOPA
     Indication: Restless legs syndrome
     Dosage: UNK UNK, BID
     Route: 048
  28. SELENASE [SODIUM SELENITE] [Concomitant]
     Indication: Selenium deficiency
     Dosage: 100 MICROGRAM, QD
     Route: 048

REACTIONS (1)
  - Atrial fibrillation [Unknown]

NARRATIVE: CASE EVENT DATE: 20190218
